FAERS Safety Report 6527916-4 (Version None)
Quarter: 2010Q1

REPORT INFORMATION
  Report Type: 
  Country: None (occurrence: None)
  Receive Date: 20100105
  Receipt Date: 20100105
  Transmission Date: 20100710
  Serious: Yes (Life-Threatening)
  Sender: FDA-Public Use
  Company Number: None

PATIENT
  Age: 59 Year
  Sex: Male

DRUGS (2)
  1. MORPHINE [Suspect]
     Indication: PAIN
     Dosage: 2 MG ONCE IV
     Route: 042
     Dates: start: 20091118
  2. LORAZEPAM [Suspect]
     Indication: AGITATION
     Dosage: 1 MG ONCE IV
     Route: 042
     Dates: start: 20091118

REACTIONS (1)
  - RESPIRATORY DEPRESSION [None]
